FAERS Safety Report 21630119 (Version 3)
Quarter: 2022Q4

REPORT INFORMATION
  Report Type: Report from Study
  Country: FR (occurrence: FR)
  Receive Date: 20221122
  Receipt Date: 20221223
  Transmission Date: 20230113
  Serious: Yes (Other)
  Sender: FDA-Public Use
  Company Number: FR-GILEAD-2022-0605669

PATIENT
  Sex: Female
  Weight: 64 kg

DRUGS (4)
  1. SACITUZUMAB GOVITECAN-HZIY [Suspect]
     Active Substance: SACITUZUMAB GOVITECAN-HZIY
     Indication: Triple negative breast cancer
     Dosage: 10 MG/KG, C1D1, D8 NOT DONE
     Route: 042
     Dates: start: 20220802
  2. SACITUZUMAB GOVITECAN-HZIY [Suspect]
     Active Substance: SACITUZUMAB GOVITECAN-HZIY
     Dosage: 10 MG/KG ON C2D1
     Route: 042
     Dates: start: 20220913
  3. SACITUZUMAB GOVITECAN-HZIY [Suspect]
     Active Substance: SACITUZUMAB GOVITECAN-HZIY
     Dosage: 7.5 MG/KG ON C3D1 AND C3D8
     Route: 042
     Dates: start: 20221011, end: 20221019
  4. SACITUZUMAB GOVITECAN-HZIY [Suspect]
     Active Substance: SACITUZUMAB GOVITECAN-HZIY
     Dosage: 4.92 MG/KG ON C4D1/D8
     Route: 042
     Dates: start: 20221031, end: 20221107

REACTIONS (9)
  - Cholestasis [Unknown]
  - Hepatotoxicity [Not Recovered/Not Resolved]
  - Haematotoxicity [Unknown]
  - Surgery [Unknown]
  - Cell death [Unknown]
  - Asthenia [Recovered/Resolved]
  - Decreased appetite [Recovered/Resolved]
  - Supraventricular tachycardia [Unknown]
  - Off label use [Unknown]

NARRATIVE: CASE EVENT DATE: 20220913
